FAERS Safety Report 18558244 (Version 2)
Quarter: 2020Q4

REPORT INFORMATION
  Report Type: Report from Study
  Country: None (occurrence: IL)
  Receive Date: 20201130
  Receipt Date: 20201224
  Transmission Date: 20210114
  Serious: No
  Sender: FDA-Public Use
  Company Number: IL-ABBVIE-20K-082-3547605-00

PATIENT
  Age: 73 Year
  Sex: Male

DRUGS (17)
  1. DUODOPA [Suspect]
     Active Substance: CARBIDOPA\LEVODOPA
     Indication: PARKINSON^S DISEASE
     Dosage: MORNING 3 ML, CONTINUOUS RATE 3.3 ML/HOUR, ED 2 ML
     Route: 050
     Dates: start: 2020, end: 2020
  2. DUODOPA [Suspect]
     Active Substance: CARBIDOPA\LEVODOPA
     Dosage: MD 13 ML, CD 3.5 ML/HOUR, ED 2 ML
     Route: 050
     Dates: start: 20200223, end: 2020
  3. DUODOPA [Suspect]
     Active Substance: CARBIDOPA\LEVODOPA
     Dosage: CD: 3.40
     Route: 050
     Dates: start: 202009, end: 202009
  4. DUODOPA [Suspect]
     Active Substance: CARBIDOPA\LEVODOPA
     Dosage: MD10.5 ML, CD 3.2ML/HOUR, ED 2.3 ML, THERAPY DURATION (HRS) REMAINS AT 16
     Route: 050
     Dates: start: 2020, end: 20201118
  5. SINEMET [Concomitant]
     Active Substance: CARBIDOPA\LEVODOPA
     Indication: PRODUCT USED FOR UNKNOWN INDICATION
  6. DUODOPA [Suspect]
     Active Substance: CARBIDOPA\LEVODOPA
     Dosage: CD: 3.20
     Route: 050
     Dates: start: 202009, end: 2020
  7. DUODOPA [Suspect]
     Active Substance: CARBIDOPA\LEVODOPA
     Dosage: CONTINUOUS RATE WAS INCREASED FROM 3.3ML/HOUR TO 3.4ML/HOUR
     Route: 050
     Dates: start: 2020, end: 2020
  8. DUODOPA [Suspect]
     Active Substance: CARBIDOPA\LEVODOPA
     Dosage: MORNING DOSE INCREASED TO 11.5 ML, CONTINUOUS DOSE INCREASED TO 3.6 ML/HOUR, ED 2.5 M
     Route: 050
     Dates: start: 20201118, end: 2020
  9. IRON [Concomitant]
     Active Substance: IRON
     Indication: PRODUCT USED FOR UNKNOWN INDICATION
  10. DUODOPA [Suspect]
     Active Substance: CARBIDOPA\LEVODOPA
     Dosage: CURRENT: MD 13ML, CD 3.7ML/HOUR, ED 2ML
     Route: 050
     Dates: start: 2020, end: 2020
  11. DUODOPA [Suspect]
     Active Substance: CARBIDOPA\LEVODOPA
     Dosage: MD13ML,CD 3.7ML/HOUR, ED 2ML
     Route: 050
     Dates: start: 20200830, end: 202008
  12. DUODOPA [Suspect]
     Active Substance: CARBIDOPA\LEVODOPA
     Dosage: CURRENT MORNING DOSE 10.5 ML, CONTINUOUS DOSE 3.2ML/HOUR
     Route: 050
     Dates: start: 2020, end: 2020
  13. DUODOPA [Suspect]
     Active Substance: CARBIDOPA\LEVODOPA
     Dosage: CURRENT: CD 4ML/HOUR, ED 2.3ML
     Route: 050
     Dates: start: 2020, end: 2020
  14. DUODOPA [Suspect]
     Active Substance: CARBIDOPA\LEVODOPA
     Dosage: MORNING DOSAGE(ML) 10.5CONTINUOUS DOSAGE (ML/H)3.4,EXTRA DOSAGE (ML) 2.5?REMAINS AT 16 HRS
     Route: 050
     Dates: start: 2020, end: 2020
  15. DUODOPA [Suspect]
     Active Substance: CARBIDOPA\LEVODOPA
     Dosage: MD 6.5 ML, CD 3.8 ML/HR, ED 2.5 ML NIGHT CONTINUOUS DOSAGE 2 ML/HR
     Route: 050
     Dates: start: 2020
  16. DUODOPA [Suspect]
     Active Substance: CARBIDOPA\LEVODOPA
     Dosage: CONTINUOUS RATE WAS INCREASED FROM 3.2 ML/HOUR TO 3.3ML/HOUR
     Route: 050
     Dates: start: 2020, end: 2020
  17. DUODOPA [Suspect]
     Active Substance: CARBIDOPA\LEVODOPA
     Dosage: MORNING 12 ML
     Route: 050
     Dates: start: 2020, end: 2020

REACTIONS (6)
  - On and off phenomenon [Unknown]
  - Dyskinesia [Unknown]
  - Tremor [Unknown]
  - Device issue [Unknown]
  - Middle insomnia [Not Recovered/Not Resolved]
  - Stoma site erythema [Recovered/Resolved]

NARRATIVE: CASE EVENT DATE: 2020
